FAERS Safety Report 15983532 (Version 1)
Quarter: 2019Q1

REPORT INFORMATION
  Report Type: Spontaneous
  Country: US (occurrence: US)
  Receive Date: 20190219
  Receipt Date: 20190219
  Transmission Date: 20190418
  Serious: No
  Sender: FDA-Public Use
  Company Number: None

PATIENT
  Age: 20 Year
  Sex: Female
  Weight: 56 kg

DRUGS (1)
  1. NEXPLANON [Suspect]
     Active Substance: ETONOGESTREL

REACTIONS (7)
  - Depressed mood [None]
  - Weight increased [None]
  - Pulmonary pain [None]
  - Angina pectoris [None]
  - Intentional self-injury [None]
  - Weight decreased [None]
  - Chest pain [None]
